FAERS Safety Report 4533458-8 (Version None)
Quarter: 2004Q4

REPORT INFORMATION
  Report Type: 
  Country: None (occurrence: None)
  Receive Date: 20041210
  Receipt Date: 20040130
  Transmission Date: 20050328
  Serious: No
  Sender: FDA-Public Use
  Company Number: RS004191-USA

PATIENT

DRUGS (1)
  1. ACIPHEX [Suspect]
     Dosage: ORAL
     Route: 048

REACTIONS (1)
  - STEVENS-JOHNSON SYNDROME [None]
